FAERS Safety Report 9341800 (Version 1)
Quarter: 2013Q2

REPORT INFORMATION
  Report Type: Spontaneous
  Country: US (occurrence: None)
  Receive Date: 20130606
  Receipt Date: 20130606
  Transmission Date: 20140414
  Serious: Yes (Other)
  Sender: FDA-Public Use
  Company Number: 1743798

PATIENT
  Age: 16 Year
  Sex: Male

DRUGS (1)
  1. SODIUM HYDROGEN CARBONATE [Suspect]
     Indication: URINE ANALYSIS ABNORMAL
     Route: 041

REACTIONS (8)
  - Hypocalcaemia [None]
  - Haemodynamic instability [None]
  - Ventricular arrhythmia [None]
  - Dialysis [None]
  - Bradycardia [None]
  - Hypotension [None]
  - Electrocardiogram ST segment depression [None]
  - Hypovolaemia [None]
